FAERS Safety Report 16994722 (Version 2)
Quarter: 2020Q1

REPORT INFORMATION
  Report Type: Report from Study
  Country: CA (occurrence: CA)
  Receive Date: 20191105
  Receipt Date: 20200129
  Transmission Date: 20200409
  Serious: Yes (Other)
  Sender: FDA-Public Use
  Company Number: CA-PFIZER INC-2019476134

PATIENT
  Age: 38 Year
  Sex: Male

DRUGS (3)
  1. COSENTYX [Suspect]
     Active Substance: SECUKINUMAB
     Indication: PSORIATIC ARTHROPATHY
     Dosage: 150 MG, WEEKLY
     Route: 058
     Dates: start: 20180607
  2. COSENTYX [Suspect]
     Active Substance: SECUKINUMAB
     Dosage: 300 MG, MONTHLY
     Route: 058
     Dates: start: 20180715
  3. COSENTYX [Suspect]
     Active Substance: SECUKINUMAB
     Dosage: 150 MG, MONTHLY
     Route: 058
     Dates: start: 201809

REACTIONS (10)
  - Abdominal pain [Unknown]
  - Sinusitis [Unknown]
  - Incorrect dose administered [Unknown]
  - Nasal congestion [Unknown]
  - Lower respiratory tract infection [Recovering/Resolving]
  - Viral infection [Recovering/Resolving]
  - Bronchitis [Recovering/Resolving]
  - Dizziness [Unknown]
  - Sinus headache [Unknown]
  - Pneumonia [Unknown]

NARRATIVE: CASE EVENT DATE: 2018
